FAERS Safety Report 13364737 (Version 1)
Quarter: 2017Q1

REPORT INFORMATION
  Report Type: Spontaneous
  Country: US (occurrence: US)
  Receive Date: 20170323
  Receipt Date: 20170323
  Transmission Date: 20170429
  Serious: No
  Sender: FDA-Public Use
  Company Number: US-FRESENIUS KABI-FK201702332

PATIENT
  Sex: Female

DRUGS (4)
  1. OPSUMIT [Concomitant]
     Active Substance: MACITENTAN
     Indication: PULMONARY HYPERTENSION
     Dates: start: 2005
  2. CISPLATIN (MANUFACTURER UNKNOWN) [Suspect]
     Active Substance: CISPLATIN
     Indication: SCLERODERMA
     Route: 042
     Dates: start: 2007
  3. TAXOL [Suspect]
     Active Substance: PACLITAXEL
     Indication: SCLERODERMA
     Dates: start: 2007
  4. REVATIO [Concomitant]
     Active Substance: SILDENAFIL CITRATE
     Indication: PULMONARY HYPERTENSION
     Dates: start: 2005

REACTIONS (2)
  - Off label use [Unknown]
  - Sudden hearing loss [Not Recovered/Not Resolved]
